FAERS Safety Report 10034307 (Version 2)
Quarter: 2014Q1

REPORT INFORMATION
  Report Type: Spontaneous
  Country: DE (occurrence: DE)
  Receive Date: 20140325
  Receipt Date: 20140325
  Transmission Date: 20141002
  Serious: Yes (Other)
  Sender: FDA-Public Use
  Company Number: DE-AMGEN-DEUSP2014016318

PATIENT
  Age: 54 Year
  Sex: Male

DRUGS (4)
  1. ENBREL [Suspect]
     Indication: RHEUMATOID ARTHRITIS
     Dosage: 50 MG, WEEKLY
     Route: 058
     Dates: start: 20140114
  2. MTX                                /00113802/ [Concomitant]
     Dosage: UNK
  3. PREDNISOLONE [Concomitant]
     Dosage: UNK
  4. FOLIC ACID [Concomitant]
     Dosage: UNK

REACTIONS (2)
  - Nephrolithiasis [Not Recovered/Not Resolved]
  - Arthralgia [Not Recovered/Not Resolved]
